FAERS Safety Report 10414806 (Version 3)
Quarter: 2014Q4

REPORT INFORMATION
  Report Type: Spontaneous
  Country: NL (occurrence: NL)
  Receive Date: 20140828
  Receipt Date: 20141015
  Transmission Date: 20150528
  Serious: Yes (Death)
  Sender: FDA-Public Use
  Company Number: NL-AMGEN-NLDSP2014064939

PATIENT
  Age: 68 Year
  Sex: Male

DRUGS (10)
  1. OMEPRAZOL                          /00661201/ [Concomitant]
     Active Substance: OMEPRAZOLE
     Dosage: 40 MG, 1X/DAY
     Route: 048
     Dates: start: 20110825, end: 20110911
  2. METOCLOPRAMIDE. [Concomitant]
     Active Substance: METOCLOPRAMIDE
     Dosage: 10 MG, 4X/DAY AS NEEDED
     Route: 048
  3. SENNOSIDE A+B [Concomitant]
     Active Substance: SENNOSIDES A AND B
     Dosage: UNK
     Dates: start: 20110912, end: 20110913
  4. HYDROXOCOBALAMIN [Concomitant]
     Active Substance: HYDROXOCOBALAMIN
     Dosage: UNK
     Route: 030
     Dates: start: 20110722, end: 20110909
  5. ENBREL [Suspect]
     Active Substance: ETANERCEPT
     Indication: PRODUCT USED FOR UNKNOWN INDICATION
     Dosage: 50 MG, QWK
     Route: 058
     Dates: start: 20111201, end: 20120112
  6. FOLIC ACID. [Concomitant]
     Active Substance: FOLIC ACID
     Dosage: 0.5 MG, 1X/DAY
     Route: 048
     Dates: start: 20110722, end: 20110911
  7. CHLORPROMAZINE [Concomitant]
     Active Substance: CHLORPROMAZINE
     Dosage: 25 MG, 3X/DAY AS NEEDED
     Dates: start: 20110825, end: 20110909
  8. OMEPRAZOL                          /00661201/ [Concomitant]
     Active Substance: OMEPRAZOLE
     Dosage: 40 MG, 1X/DAY
     Route: 048
     Dates: start: 20110912, end: 20110913
  9. METOCLOPRAMIDE. [Concomitant]
     Active Substance: METOCLOPRAMIDE
     Dosage: 10 MG, UNK
     Route: 054
     Dates: start: 20100828, end: 20110909
  10. PARACETAMOL [Concomitant]
     Active Substance: ACETAMINOPHEN
     Dosage: 500 MG, 1X/DAY AS NEEDED 2X/DAY
     Route: 048
     Dates: start: 20110722, end: 20110909

REACTIONS (1)
  - Mesothelioma [Fatal]
